FAERS Safety Report 26206652 (Version 1)
Quarter: 2025Q4

REPORT INFORMATION
  Report Type: Spontaneous
  Country: JP (occurrence: JP)
  Receive Date: 20251229
  Receipt Date: 20251229
  Transmission Date: 20260117
  Serious: Yes (Hospitalization, Other)
  Sender: ALEXION PHARMACEUTICALS
  Company Number: JP-ASTRAZENECA-202511JPN026307JP

PATIENT
  Age: 62 Year
  Sex: Female
  Weight: 50.2 kg

DRUGS (3)
  1. TRUQAP [Suspect]
     Active Substance: CAPIVASERTIB
     Indication: Breast cancer recurrent
     Dosage: UNK
     Route: 065
  2. FASLODEX [Suspect]
     Active Substance: FULVESTRANT
     Indication: Breast cancer
     Dosage: UNK
     Route: 065
  3. FASLODEX [Suspect]
     Active Substance: FULVESTRANT

REACTIONS (4)
  - Metastases to central nervous system [Not Recovered/Not Resolved]
  - Urinary tract infection [Recovered/Resolved]
  - Hyperglycaemia [Recovered/Resolved]
  - Insulin resistance [Recovered/Resolved]
